FAERS Safety Report 4416604-6 (Version None)
Quarter: 2004Q3

REPORT INFORMATION
  Report Type: 
  Country: None (occurrence: None)
  Receive Date: 20040802
  Receipt Date: 20040729
  Transmission Date: 20050211
  Serious: Yes (Death)
  Sender: FDA-Public Use
  Company Number: 200411853GDS

PATIENT
  Age: 79 Year
  Sex: Male
  Weight: 70 kg

DRUGS (2)
  1. AVELOX [Suspect]
     Indication: PNEUMONIA
     Dosage: 400 MG, TOTAL DAILY, INTRAVENOUS
     Route: 042
     Dates: start: 20040402, end: 20040411
  2. MAXIPIME [Suspect]
     Indication: PNEUMONIA
     Dosage: 6 G, TOTAL DAILY
     Dates: end: 20040411

REACTIONS (3)
  - ASBESTOSIS [None]
  - CLOSTRIDIUM COLITIS [None]
  - DISEASE PROGRESSION [None]
